FAERS Safety Report 8962771 (Version 1)
Quarter: 2012Q4

REPORT INFORMATION
  Report Type: 
  Country: US (occurrence: US)
  Receive Date: 20121214
  Receipt Date: 20121214
  Transmission Date: 20130627
  Serious: No
  Sender: FDA-Public Use
  Company Number: US-JNJFOC-20121200644

PATIENT

DRUGS (1)
  1. DURAGESIC [Suspect]
     Indication: PRODUCT USED FOR UNKNOWN INDICATION
     Route: 062

REACTIONS (1)
  - Wrong technique in drug usage process [Unknown]
